FAERS Safety Report 18765965 (Version 1)
Quarter: 2021Q1

REPORT INFORMATION
  Report Type: Report from Study
  Country: IT (occurrence: IT)
  Receive Date: 20210121
  Receipt Date: 20210121
  Transmission Date: 20210419
  Serious: Yes (Hospitalization)
  Sender: FDA-Public Use
  Company Number: IT-JNJFOC-20191039706

PATIENT
  Age: 44 Year
  Sex: Male
  Weight: 66 kg

DRUGS (5)
  1. FENTANYL. [Concomitant]
     Active Substance: FENTANYL
     Indication: SEDATION
     Route: 065
     Dates: start: 20190418, end: 20190418
  2. SELG ESSE [Concomitant]
     Indication: BOWEL PREPARATION
     Route: 065
     Dates: start: 20190417, end: 20190418
  3. USTEKINUMAB [Suspect]
     Active Substance: USTEKINUMAB
     Indication: CROHN^S DISEASE
     Route: 058
     Dates: start: 20190429
  4. QUESTRAN [Concomitant]
     Active Substance: CHOLESTYRAMINE
     Indication: CROHN^S DISEASE
     Route: 065
     Dates: start: 201303
  5. MIDAZOLAM. [Concomitant]
     Active Substance: MIDAZOLAM
     Indication: SEDATION
     Route: 065
     Dates: start: 20190418, end: 20190418

REACTIONS (1)
  - Diverticulitis [Recovered/Resolved]

NARRATIVE: CASE EVENT DATE: 20191020
